FAERS Safety Report 12789604 (Version 1)
Quarter: 2016Q3

REPORT INFORMATION
  Report Type: Spontaneous
  Country: US (occurrence: US)
  Receive Date: 20160928
  Receipt Date: 20160928
  Transmission Date: 20161109
  Serious: No
  Sender: FDA-Public Use
  Company Number: US-MEDA-2016090067

PATIENT
  Sex: Male

DRUGS (1)
  1. ASTELIN [Suspect]
     Active Substance: AZELASTINE HYDROCHLORIDE
     Indication: RHINITIS ALLERGIC

REACTIONS (1)
  - Drug ineffective [Not Recovered/Not Resolved]
